FAERS Safety Report 7562532-7 (Version None)
Quarter: 2011Q2

REPORT INFORMATION
  Report Type: 
  Country: None (occurrence: None)
  Receive Date: 20110622
  Receipt Date: 20110608
  Transmission Date: 20111010
  Serious: Yes (Hospitalization)
  Sender: FDA-Public Use
  Company Number: FR-JNJFOC-20101208331

PATIENT
  Age: 63 Year
  Sex: Female

DRUGS (3)
  1. REMICADE [Suspect]
     Route: 042
     Dates: start: 20030101
  2. METHOTREXATE [Suspect]
     Indication: PRODUCT USED FOR UNKNOWN INDICATION
     Route: 048
     Dates: start: 20030101
  3. REMICADE [Suspect]
     Indication: RHEUMATOID ARTHRITIS
     Route: 042
     Dates: start: 20101115

REACTIONS (2)
  - ACUTE CORONARY SYNDROME [None]
  - MYOCARDIAL INFARCTION [None]
